FAERS Safety Report 7236874-9 (Version None)
Quarter: 2011Q1

REPORT INFORMATION
  Report Type: 
  Country: None (occurrence: None)
  Receive Date: 20110120
  Receipt Date: 20110110
  Transmission Date: 20110831
  Serious: Yes (Hospitalization)
  Sender: FDA-Public Use
  Company Number: US-MERCK-1101USA00706

PATIENT
  Age: 68 Year
  Sex: Male

DRUGS (1)
  1. PRIMAXIN [Suspect]
     Indication: INFECTION
     Route: 051
     Dates: start: 20100101

REACTIONS (5)
  - ABDOMINAL PAIN LOWER [None]
  - URINE COLOUR ABNORMAL [None]
  - ABDOMINAL PAIN UPPER [None]
  - UPPER LIMB FRACTURE [None]
  - INSOMNIA [None]
